FAERS Safety Report 6433667-7 (Version None)
Quarter: 2009Q4

REPORT INFORMATION
  Report Type: 
  Country: None (occurrence: None)
  Receive Date: 20091110
  Receipt Date: 20091029
  Transmission Date: 20100525
  Serious: No
  Sender: FDA-Public Use
  Company Number: US-B.I. PHARMACEUTICALS,INC./RIDGEFIELD-2009-BP-12175BP

PATIENT
  Age: 68 Year
  Sex: Male

DRUGS (1)
  1. FLOMAX [Suspect]
     Indication: BENIGN PROSTATIC HYPERPLASIA
     Dosage: 0.2 MG
     Route: 048
     Dates: start: 20050101

REACTIONS (5)
  - BLOOD PRESSURE INCREASED [None]
  - HEADACHE [None]
  - PAIN IN EXTREMITY [None]
  - RESIDUAL URINE [None]
  - WEIGHT INCREASED [None]
